FAERS Safety Report 10897971 (Version 1)
Quarter: 2015Q1

REPORT INFORMATION
  Report Type: Spontaneous
  Country: US (occurrence: None)
  Receive Date: 20150302
  Receipt Date: 20150302
  Transmission Date: 20150721
  Serious: No
  Sender: FDA-Public Use
  Company Number: None

PATIENT
  Age: 66 Year
  Sex: Male
  Weight: 136.08 kg

DRUGS (7)
  1. PRAVASTATIN SODIUM. [Concomitant]
     Active Substance: PRAVASTATIN SODIUM
  2. NATURE MADE FISH OIL [Concomitant]
  3. PENNSAID [Suspect]
     Active Substance: DICLOFENAC SODIUM
     Indication: ARTHRALGIA
     Dosage: TWO PUMPS
     Dates: start: 20150206, end: 20150215
  4. MULTIVITAMIN [Concomitant]
     Active Substance: VITAMINS
  5. BENICAR [Concomitant]
     Active Substance: OLMESARTAN MEDOXOMIL
  6. NATURE MADE DIABETES HEALTH [Concomitant]
  7. GLIMEPIRIDE. [Concomitant]
     Active Substance: GLIMEPIRIDE

REACTIONS (8)
  - Dyspepsia [None]
  - Diarrhoea [None]
  - Pain [None]
  - Blood glucose decreased [None]
  - Abdominal discomfort [None]
  - Flatulence [None]
  - Chest discomfort [None]
  - Nausea [None]

NARRATIVE: CASE EVENT DATE: 20150208
